FAERS Safety Report 4343243-8 (Version None)
Quarter: 2004Q1

REPORT INFORMATION
  Report Type: 
  Country: None (occurrence: None)
  Receive Date: 20040325
  Receipt Date: 20040225
  Transmission Date: 20041129
  Serious: No
  Sender: FDA-Public Use
  Company Number: USA040259760

PATIENT
  Age: 72 Year
  Sex: Female
  Weight: 75 kg

DRUGS (7)
  1. FORTEO [Suspect]
     Indication: BONE DISORDER
     Dosage: 20 UG/ 1 DAY
     Dates: start: 20040210
  2. FORTEO [Suspect]
     Indication: OSTEOGENESIS IMPERFECTA
     Dosage: 20 UG/ 1 DAY
     Dates: start: 20040210
  3. PERCOCET [Concomitant]
  4. XANAX [Concomitant]
  5. HYDROCHLOROTHIAZIDE [Concomitant]
  6. LABETALOL HCL [Concomitant]
  7. ACETAMINOPHEN [Concomitant]

REACTIONS (1)
  - NERVOUSNESS [None]
